FAERS Safety Report 4579929-X (Version None)
Quarter: 2005Q1

REPORT INFORMATION
  Report Type: 
  Country: None (occurrence: None)
  Receive Date: 20050210
  Receipt Date: 20050126
  Transmission Date: 20050727
  Serious: Yes (Death)
  Sender: FDA-Public Use
  Company Number: 2004AL000710

PATIENT
  Age: 44 Year
  Sex: Female

DRUGS (14)
  1. VERAPAMIL HYDROCHLORIDE [Suspect]
     Dosage: PO
     Route: 048
  2. IMIPRAMINE [Suspect]
     Dosage: PO
     Route: 048
  3. TOPIRAMATE [Suspect]
     Dosage: PO
  4. ACYCLOVIR [Concomitant]
  5. CETIRIZINE HCL [Concomitant]
  6. BUDESONIDE [Concomitant]
  7. LANSOPRAZOLE [Concomitant]
  8. FLUOXETINE [Concomitant]
  9. MONTELUKAST [Concomitant]
  10. OLANZAPINE [Concomitant]
  11. FOLATE [Concomitant]
  12. TRIFLUOSPERAZINE [Concomitant]
  13. ETHINYLESTRADIOL W/NORETHISTERONE ACETATE [Concomitant]
  14. ALPRAZOLAM [Concomitant]

REACTIONS (14)
  - AGITATION [None]
  - BRADYCARDIA [None]
  - CARDIAC ARREST [None]
  - COMA [None]
  - COMPLETED SUICIDE [None]
  - CONVULSION [None]
  - DYSKINESIA [None]
  - ELECTROCARDIOGRAM QRS COMPLEX PROLONGED [None]
  - MULTIPLE DRUG OVERDOSE [None]
  - PCO2 DECREASED [None]
  - PO2 INCREASED [None]
  - PULSE ABSENT [None]
  - TORSADE DE POINTES [None]
  - VENTRICULAR TACHYCARDIA [None]
